FAERS Safety Report 4355928-8 (Version None)
Quarter: 2004Q2

REPORT INFORMATION
  Report Type: 
  Country: None (occurrence: None)
  Receive Date: 20040507
  Receipt Date: 20040429
  Transmission Date: 20050107
  Serious: Yes (Hospitalization)
  Sender: FDA-Public Use
  Company Number: 04-04-0615

PATIENT
  Age: 78 Year
  Sex: Male

DRUGS (6)
  1. DIAZEPAM [Suspect]
     Indication: ANXIETY DISORDER
     Dosage: 5MG BID ORAL
     Route: 048
  2. PAROXETINE HCL [Concomitant]
  3. LEVOTHYROXINE [Concomitant]
  4. RABEPRAZOLE SODIUM [Concomitant]
  5. RANITIDINE [Concomitant]
  6. FINASTERIDE [Concomitant]

REACTIONS (1)
  - DELUSION [None]
